FAERS Safety Report 5886424-4 (Version None)
Quarter: 2008Q3

REPORT INFORMATION
  Report Type: 
  Country: None (occurrence: None)
  Receive Date: 20080917
  Receipt Date: 20080808
  Transmission Date: 20090109
  Serious: No
  Sender: FDA-Public Use
  Company Number: US-BAYER-200813341BCC

PATIENT
  Age: 64 Year
  Sex: Female

DRUGS (2)
  1. ALEVE [Suspect]
     Indication: PAIN IN EXTREMITY
     Dosage: TOTAL DAILY DOSE: 220 MG  UNIT DOSE: 220 MG
     Route: 048
     Dates: start: 20080807
  2. UNKNOWN THYROID MEDICATION [Concomitant]

REACTIONS (1)
  - MIDDLE INSOMNIA [None]
